FAERS Safety Report 11581419 (Version 1)
Quarter: 2015Q4

REPORT INFORMATION
  Report Type: Spontaneous
  Country: US (occurrence: US)
  Receive Date: 20151001
  Receipt Date: 20151001
  Transmission Date: 20160304
  Serious: No
  Sender: FDA-Public Use
  Company Number: US-ROCHE-676584

PATIENT
  Age: 52 Year
  Sex: Female

DRUGS (2)
  1. COPEGUS [Suspect]
     Active Substance: RIBAVIRIN
     Indication: HEPATITIS C
     Dosage: DIVIDED DOSES, PATIENT WAS IN WEEK 16 OF THERAPY
     Route: 065
  2. PEGASYS [Suspect]
     Active Substance: PEGINTERFERON ALFA-2A
     Indication: HEPATITIS C
     Dosage: FORM: PRE-FILLED SYRINGE (PFS), PATIENT WAS IN WEEK 16 OF THERAPY
     Route: 065

REACTIONS (6)
  - Dyspnoea [Recovered/Resolved]
  - Thinking abnormal [Not Recovered/Not Resolved]
  - Nausea [Recovered/Resolved]
  - Chills [Unknown]
  - Headache [Unknown]
  - Pain in extremity [Unknown]

NARRATIVE: CASE EVENT DATE: 200912
